FAERS Safety Report 23481581 (Version 1)
Quarter: 2024Q1

REPORT INFORMATION
  Report Type: Spontaneous
  Country: US (occurrence: None)
  Receive Date: 20240202
  Receipt Date: 20240202
  Transmission Date: 20240410
  Serious: No
  Sender: FDA-Public Use
  Company Number: None

PATIENT
  Age: 71 Year
  Sex: Female
  Weight: 81 kg

DRUGS (1)
  1. RECLAST [Suspect]
     Active Substance: ZOLEDRONIC ACID

REACTIONS (8)
  - Dizziness [None]
  - Fall [None]
  - Gait disturbance [None]
  - Impaired driving ability [None]
  - Mental impairment [None]
  - Ophthalmic migraine [None]
  - Nervous system disorder [None]
  - Sensory disturbance [None]

NARRATIVE: CASE EVENT DATE: 20230526
